FAERS Safety Report 14479247 (Version 1)
Quarter: 2018Q1

REPORT INFORMATION
  Report Type: Spontaneous
  Country: ES (occurrence: ES)
  Receive Date: 20180202
  Receipt Date: 20180202
  Transmission Date: 20180509
  Serious: Yes (Life-Threatening, Other)
  Sender: FDA-Public Use
  Company Number: ES-CIPLA LTD.-2018ES00760

PATIENT

DRUGS (3)
  1. OXALIPLATIN. [Suspect]
     Active Substance: OXALIPLATIN
     Indication: COLORECTAL CANCER METASTATIC
     Dosage: UNK, PREOPERATIVE CHEMOTHERAPY
     Route: 065
  2. RALTITREXED [Concomitant]
     Active Substance: RALTITREXED
     Indication: METASTASES TO LIVER
     Dosage: UNK, 6 CYCLICAL
     Route: 065
  3. OXALIPLATIN. [Suspect]
     Active Substance: OXALIPLATIN
     Indication: METASTASES TO LIVER
     Dosage: UNK, 6 CYCLICAL
     Route: 065

REACTIONS (2)
  - Post procedural complication [Unknown]
  - Venoocclusive liver disease [Unknown]
